FAERS Safety Report 19824350 (Version 1)
Quarter: 2021Q3

REPORT INFORMATION
  Report Type: Spontaneous
  Country: US (occurrence: US)
  Receive Date: 20210913
  Receipt Date: 20210913
  Transmission Date: 20211014
  Serious: No
  Sender: FDA-Public Use
  Company Number: US-KALA PHARAMACEUTICALS-2021KLA00074

PATIENT
  Age: 61 Year
  Sex: Female
  Weight: 80.27 kg

DRUGS (2)
  1. INVELTYS [Suspect]
     Active Substance: LOTEPREDNOL ETABONATE
     Indication: INTRAOCULAR PRESSURE INCREASED
     Dosage: 1 DROP, 6X/DAY IN 1 EYE
     Route: 047
     Dates: start: 20210719
  2. INVELTYS [Suspect]
     Active Substance: LOTEPREDNOL ETABONATE
     Indication: IRITIS
     Dosage: 1 DROP, 6X/DAY IN 1 EYE
     Route: 047
     Dates: start: 20210711, end: 20210718

REACTIONS (3)
  - Photophobia [Unknown]
  - Off label use [Not Recovered/Not Resolved]
  - Instillation site pain [Not Recovered/Not Resolved]

NARRATIVE: CASE EVENT DATE: 20210711
